FAERS Safety Report 18813665 (Version 2)
Quarter: 2021Q3

REPORT INFORMATION
  Report Type: Report from Study
  Country: None (occurrence: US)
  Receive Date: 20210201
  Receipt Date: 20210711
  Transmission Date: 20211014
  Serious: Yes (Other)
  Sender: FDA-Public Use
  Company Number: US-ABBVIE-21K-163-3752169-00

PATIENT
  Sex: Female

DRUGS (1)
  1. HUMIRA [Suspect]
     Active Substance: ADALIMUMAB
     Indication: HIDRADENITIS
     Dosage: CITRATE FREE
     Route: 058

REACTIONS (6)
  - Injection site pain [Unknown]
  - Rash papular [Unknown]
  - Breast disorder [Recovered/Resolved]
  - Breast mass [Unknown]
  - Epilepsy [Unknown]
  - Pain [Unknown]
